FAERS Safety Report 10216963 (Version 1)
Quarter: 2014Q2

REPORT INFORMATION
  Report Type: Spontaneous
  Country: US (occurrence: US)
  Receive Date: 20140604
  Receipt Date: 20140604
  Transmission Date: 20141212
  Serious: Yes (Death)
  Sender: FDA-Public Use
  Company Number: US-GLAXOSMITHKLINE-A1075586A

PATIENT
  Age: 52 Year
  Sex: Female

DRUGS (1)
  1. VOTRIENT [Suspect]
     Indication: BRAIN NEOPLASM MALIGNANT
     Dosage: 600MG PER DAY
     Route: 048
     Dates: start: 20140409

REACTIONS (1)
  - Malignant neoplasm progression [Fatal]
